FAERS Safety Report 16313327 (Version 1)
Quarter: 2019Q2

REPORT INFORMATION
  Report Type: Spontaneous
  Country: PL (occurrence: PL)
  Receive Date: 20190515
  Receipt Date: 20190515
  Transmission Date: 20190711
  Serious: Yes (Life-Threatening, Hospitalization)
  Sender: FDA-Public Use
  Company Number: PL-ROCHE-2313343

PATIENT
  Age: 44 Year
  Sex: Male
  Weight: 80 kg

DRUGS (2)
  1. PEGASYS [Suspect]
     Active Substance: PEGINTERFERON ALFA-2A
     Indication: CHRONIC HEPATITIS C
     Dosage: ON 21/NOV/2014, HE RECEIVED MOST RECENT DOSE OF PEGINTERFERON ALFA-2A.
     Route: 058
     Dates: start: 20140919
  2. COPEGUS [Suspect]
     Active Substance: RIBAVIRIN
     Indication: CHRONIC HEPATITIS C
     Dosage: ON 21/NOV/2014, HE RECEIVED MOST RECENT DOSE OF RIBAVIRIN.
     Route: 048
     Dates: start: 20140919

REACTIONS (4)
  - Streptococcal sepsis [Recovering/Resolving]
  - Pneumonia [Recovering/Resolving]
  - Pleurisy [Recovering/Resolving]
  - Arthritis [Recovering/Resolving]

NARRATIVE: CASE EVENT DATE: 20141118
